FAERS Safety Report 8270668-0 (Version None)
Quarter: 2012Q2

REPORT INFORMATION
  Report Type: 
  Country: None (occurrence: None)
  Receive Date: 20120406
  Receipt Date: 20120323
  Transmission Date: 20120825
  Serious: Yes (Other)
  Sender: FDA-Public Use
  Company Number: 2012000062

PATIENT
  Age: 87 Year

DRUGS (5)
  1. PERINDOPRIL ERBUMINE [Suspect]
     Indication: ESSENTIAL HYPERTENSION
     Dosage: 8 MG, QD, ORAL
     Route: 048
     Dates: start: 20110330
  2. ATACAND [Suspect]
     Indication: ESSENTIAL HYPERTENSION
     Dosage: 1 MG, QD, ORAL
     Route: 048
     Dates: start: 20110330
  3. SIMVASTATIN [Concomitant]
  4. AMOXYCILLIN (AMOXYCILLIN) [Concomitant]
  5. ATENOLOL [Suspect]
     Indication: ESSENTIAL HYPERTENSION
     Dosage: 50 MG, QD, ORAL
     Route: 048
     Dates: start: 20110316

REACTIONS (4)
  - ORTHOSTATIC HYPOTENSION [None]
  - SYNCOPE [None]
  - DIZZINESS [None]
  - NAUSEA [None]
